FAERS Safety Report 5415940-4 (Version None)
Quarter: 2007Q3

REPORT INFORMATION
  Report Type: 
  Country: None (occurrence: None)
  Receive Date: 20070815
  Receipt Date: 20070803
  Transmission Date: 20080115
  Serious: Yes (Congenital Anomaly)
  Sender: FDA-Public Use
  Company Number: US-SHR-US-2007-004605

PATIENT
  Age: 1 Day
  Sex: Female
  Weight: 3.487 kg

DRUGS (5)
  1. PRENATAL VITAMINS [Concomitant]
     Dates: start: 20061031
  2. FOLIC ACID [Concomitant]
  3. BETAFERON [Suspect]
     Dosage: .3 MG, UNK
     Dates: end: 20061005
  4. CALCIUM CHLORIDE [Concomitant]
  5. CENTRUM [Concomitant]

REACTIONS (1)
  - POLYDACTYLY [None]
